FAERS Safety Report 11809544 (Version 1)
Quarter: 2015Q4

REPORT INFORMATION
  Report Type: Report from Study
  Country: GR (occurrence: GR)
  Receive Date: 20151208
  Receipt Date: 20151208
  Transmission Date: 20160305
  Serious: Yes (Other)
  Sender: FDA-Public Use
  Company Number: GR-ROCHE-1670783

PATIENT
  Sex: Female

DRUGS (8)
  1. 5-FLUOROURACIL [Suspect]
     Active Substance: FLUOROURACIL
     Indication: HER-2 POSITIVE BREAST CANCER
     Dosage: OVER 5-15 MIN?FOR FOUR CYCLES
     Route: 042
  2. DOCETAXEL. [Suspect]
     Active Substance: DOCETAXEL
     Indication: HER-2 POSITIVE BREAST CANCER
     Dosage: OVER 1 H?FOR FOUR CYCLES
     Route: 042
  3. TRASTUZUMAB [Suspect]
     Active Substance: TRASTUZUMAB
     Route: 042
  4. TRASTUZUMAB [Suspect]
     Active Substance: TRASTUZUMAB
     Dosage: UNTIL THE COMPLETION OF 12 OR 6 MONTHS OF THERAPY
     Route: 042
  5. TRASTUZUMAB [Suspect]
     Active Substance: TRASTUZUMAB
     Indication: HER-2 POSITIVE BREAST CANCER
     Dosage: OVER 30-90 MIN?LOADING DOSE
     Route: 042
  6. CYCLOPHOSPHAMIDE. [Suspect]
     Active Substance: CYCLOPHOSPHAMIDE
     Indication: HER-2 POSITIVE BREAST CANCER
     Dosage: OVER 30-60 MIN?FOR FOUR CYCLES
     Route: 042
  7. EPIRUBICIN [Suspect]
     Active Substance: EPIRUBICIN
     Indication: HER-2 POSITIVE BREAST CANCER
     Dosage: OVER 5-5 MIN?FOR FOUR CYCLES
     Route: 042
  8. FILGRASTIM [Concomitant]
     Active Substance: FILGRASTIM
     Indication: PROPHYLAXIS
     Dosage: ROUNDED TO EITHER 300 OR 480-MCG TOTAL DOSE?ON DAYS 3-10 OF EACH CHEMOTHERAPY CYCLE OF BOTH FEC AND
     Route: 065

REACTIONS (12)
  - Hypersensitivity [Unknown]
  - Thrombocytopenia [Unknown]
  - Cardiotoxicity [Unknown]
  - Febrile neutropenia [Unknown]
  - Ejection fraction decreased [Unknown]
  - Diarrhoea [Unknown]
  - Nail toxicity [Unknown]
  - Palmar-plantar erythrodysaesthesia syndrome [Unknown]
  - Neutropenia [Unknown]
  - Peripheral sensory neuropathy [Unknown]
  - Vomiting [Unknown]
  - Skin toxicity [Unknown]
